FAERS Safety Report 7486207-8 (Version None)
Quarter: 2011Q2

REPORT INFORMATION
  Report Type: 
  Country: None (occurrence: None)
  Receive Date: 20110517
  Receipt Date: 20110214
  Transmission Date: 20111010
  Serious: Yes (Other)
  Sender: FDA-Public Use
  Company Number: A0891837A

PATIENT
  Age: 70 Year
  Sex: Female
  Weight: 73.6 kg

DRUGS (4)
  1. RAMIPRIL [Concomitant]
  2. VOTRIENT [Suspect]
     Indication: RENAL CANCER
     Route: 048
     Dates: start: 20100826
  3. SYNTHROID [Concomitant]
  4. DIOVAN [Concomitant]

REACTIONS (6)
  - ASPARTATE AMINOTRANSFERASE INCREASED [None]
  - ALOPECIA [None]
  - HEPATIC ENZYME INCREASED [None]
  - DIARRHOEA [None]
  - ALANINE AMINOTRANSFERASE INCREASED [None]
  - NAUSEA [None]
